FAERS Safety Report 24939708 (Version 2)
Quarter: 2025Q1

REPORT INFORMATION
  Report Type: Spontaneous
  Country: IT (occurrence: IT)
  Receive Date: 20250207
  Receipt Date: 20250326
  Transmission Date: 20250408
  Serious: Yes (Other)
  Sender: AMGEN
  Company Number: IT-AMGEN-ITASP2025020227

PATIENT

DRUGS (1)
  1. ADALIMUMAB [Suspect]
     Active Substance: ADALIMUMAB
     Indication: Crohn^s disease
     Route: 065

REACTIONS (7)
  - Liver disorder [Unknown]
  - Cholangitis sclerosing [Unknown]
  - Fibrosis [Unknown]
  - Portal hypertension [Unknown]
  - Bile duct stone [Unknown]
  - Gastrointestinal haemorrhage [Unknown]
  - Stenosis [Unknown]
